FAERS Safety Report 4272928-7 (Version None)
Quarter: 2004Q1

REPORT INFORMATION
  Report Type: 
  Country: None (occurrence: None)
  Receive Date: 20040114
  Receipt Date: 20040105
  Transmission Date: 20041129
  Serious: Yes (Hospitalization)
  Sender: FDA-Public Use
  Company Number: 2004193258FR

PATIENT
  Age: 42 Year
  Sex: Female

DRUGS (2)
  1. SULFASALAZINE [Suspect]
     Dosage: 500 MG, QID, ORAL
     Route: 048
     Dates: start: 20030908, end: 20031006
  2. VOLTAREN [Suspect]
     Dosage: 100MG/DAY, ORAL
     Route: 048
     Dates: start: 20030908, end: 20031006

REACTIONS (18)
  - CHOLESTASIS [None]
  - CYTOLYTIC HEPATITIS [None]
  - DRUG RASH WITH EOSINOPHILIA AND SYSTEMIC SYMPTOMS [None]
  - ENTEROVIRUS SEROLOGY TEST POSITIVE [None]
  - EPSTEIN-BARR VIRUS SEROLOGY [None]
  - HERPES ZOSTER [None]
  - INFLUENZA LIKE ILLNESS [None]
  - LEUKOCYTOSIS [None]
  - LICHEN PLANUS [None]
  - MEASLES ANTIBODY POSITIVE [None]
  - MUMPS ANTIBODY TEST POSITIVE [None]
  - PROTHROMBIN TIME RATIO DECREASED [None]
  - PRURITUS [None]
  - PURPURA [None]
  - PYREXIA [None]
  - RUBELLA ANTIBODY POSITIVE [None]
  - SEROLOGY POSITIVE [None]
  - TOXIC SKIN ERUPTION [None]
